FAERS Safety Report 7964692-2 (Version None)
Quarter: 2011Q4

REPORT INFORMATION
  Report Type: 
  Country: None (occurrence: None)
  Receive Date: 20111208
  Receipt Date: 20111130
  Transmission Date: 20120403
  Serious: Yes (Hospitalization)
  Sender: FDA-Public Use
  Company Number: FR-JNJFOC-20111202500

PATIENT
  Sex: Male

DRUGS (10)
  1. ASPIRIN [Suspect]
     Indication: MYOCARDIAL ISCHAEMIA
     Route: 048
     Dates: start: 20110601
  2. PERINDOPRIL ERBUMINE [Suspect]
     Indication: PRODUCT USED FOR UNKNOWN INDICATION
     Route: 048
     Dates: start: 20110601
  3. DURAGESIC-100 [Suspect]
     Indication: PAIN
     Route: 062
  4. ZYTIGA [Suspect]
     Indication: PROSTATE CANCER STAGE III
     Route: 048
     Dates: start: 20110601
  5. PREDNISONE TAB [Suspect]
     Indication: PROSTATE CANCER STAGE III
     Route: 048
     Dates: start: 20110601
  6. ACETAMINOPHEN [Suspect]
     Indication: PAIN
     Route: 048
     Dates: start: 20110601
  7. BISOPROLOL FUMARATE [Suspect]
     Indication: MYOCARDIAL ISCHAEMIA
     Route: 048
     Dates: start: 20110601
  8. DURAGESIC-100 [Suspect]
     Route: 062
     Dates: start: 20110601
  9. ATARAX [Suspect]
     Indication: ANXIETY
     Route: 048
     Dates: start: 20110601
  10. POTASSIUM CHLORIDE [Suspect]
     Indication: HYPOKALAEMIA
     Route: 048
     Dates: start: 20110601

REACTIONS (3)
  - AGITATION [None]
  - HALLUCINATION [None]
  - ABNORMAL BEHAVIOUR [None]
